FAERS Safety Report 11403485 (Version 1)
Quarter: 2015Q3

REPORT INFORMATION
  Report Type: Spontaneous
  Country: GB (occurrence: GB)
  Receive Date: 20150821
  Receipt Date: 20150821
  Transmission Date: 20151125
  Serious: No
  Sender: FDA-Public Use
  Company Number: GB-JNJFOC-20150811994

PATIENT
  Age: 11 Year
  Sex: Male

DRUGS (2)
  1. DUROGESIC DTRANS [Suspect]
     Active Substance: FENTANYL
     Indication: PRODUCT USED FOR UNKNOWN INDICATION
     Route: 062
  2. DUROGESIC DTRANS [Suspect]
     Active Substance: FENTANYL
     Indication: PRODUCT USED FOR UNKNOWN INDICATION
     Route: 062

REACTIONS (3)
  - Product quality issue [Unknown]
  - Breakthrough pain [Unknown]
  - Drug prescribing error [Unknown]
